FAERS Safety Report 10078833 (Version 1)
Quarter: 2014Q2

REPORT INFORMATION
  Report Type: Spontaneous
  Country: US (occurrence: US)
  Receive Date: 20140415
  Receipt Date: 20140415
  Transmission Date: 20141212
  Serious: No
  Sender: FDA-Public Use
  Company Number: US-BAYER-2014-055700

PATIENT
  Sex: Male

DRUGS (1)
  1. ALEVE CAPLET [Suspect]
     Indication: MYALGIA
     Dosage: 3 DF, QD DAILY EVEY NIGHT
     Route: 048

REACTIONS (1)
  - Inappropriate schedule of drug administration [None]
